FAERS Safety Report 16811593 (Version 3)
Quarter: 2019Q3

REPORT INFORMATION
  Report Type: Spontaneous
  Country: US (occurrence: US)
  Receive Date: 20190916
  Receipt Date: 20190919
  Transmission Date: 20191005
  Serious: Yes (Hospitalization)
  Sender: FDA-Public Use
  Company Number: US-ACTELION-A-NJ2019-195536

PATIENT
  Sex: Female
  Weight: 66.67 kg

DRUGS (4)
  1. UPTRAVI [Suspect]
     Active Substance: SELEXIPAG
     Indication: PULMONARY ARTERIAL HYPERTENSION
     Dosage: 1600 MCG, BID
     Route: 048
  2. TADALAFIL. [Concomitant]
     Active Substance: TADALAFIL
  3. LIPITOR [Concomitant]
     Active Substance: ATORVASTATIN CALCIUM
  4. AMBRISENTAN [Concomitant]
     Active Substance: AMBRISENTAN

REACTIONS (2)
  - Myocardial infarction [Unknown]
  - Vomiting [Unknown]
